FAERS Safety Report 9626532 (Version 2)
Quarter: 2013Q4

REPORT INFORMATION
  Report Type: Spontaneous
  Country: US (occurrence: US)
  Receive Date: 20131016
  Receipt Date: 20131017
  Transmission Date: 20140711
  Serious: Yes (Hospitalization, Other)
  Sender: FDA-Public Use
  Company Number: US-TEVA-437527USA

PATIENT
  Age: 49 Year
  Sex: Female

DRUGS (1)
  1. COPAXONE [Suspect]
     Indication: MULTIPLE SCLEROSIS
     Dates: start: 20090810, end: 20130615

REACTIONS (4)
  - Multiple sclerosis relapse [Unknown]
  - Abasia [Unknown]
  - Hepatitis A [Unknown]
  - Herpes zoster [Unknown]
